FAERS Safety Report 7707263-5 (Version None)
Quarter: 2011Q3

REPORT INFORMATION
  Report Type: 
  Country: None (occurrence: None)
  Receive Date: 20110824
  Receipt Date: 20110815
  Transmission Date: 20111222
  Serious: Yes (Other)
  Sender: FDA-Public Use
  Company Number: PHFR2011GB01934

PATIENT
  Sex: Male

DRUGS (5)
  1. METFORMIN HYDROCHLORIDE [Suspect]
     Indication: DIABETES MELLITUS
     Dosage: 1000 MG/DAY
     Route: 048
     Dates: start: 20090101
  2. ESOMEPRAZOLE MAGNESIUM [Suspect]
     Indication: OESOPHAGITIS
     Dosage: 40 MG/DAY
     Route: 048
     Dates: start: 19901123
  3. CLOZAPINE [Suspect]
     Indication: SCHIZOPHRENIA
     Route: 048
     Dates: start: 20050926
  4. CLOZAPINE [Suspect]
     Dosage: 350 MG/DAY
     Route: 048
     Dates: start: 20100628
  5. LEVOTHYROXINE SODIUM [Suspect]
     Indication: HYPOTHYROIDISM
     Dosage: 100 UG/DAY
     Route: 048
     Dates: start: 20100728

REACTIONS (4)
  - OESOPHAGEAL CARCINOMA [None]
  - METASTASES TO THE MEDIASTINUM [None]
  - DIABETES MELLITUS [None]
  - MALAISE [None]
